FAERS Safety Report 24667042 (Version 4)
Quarter: 2025Q4

REPORT INFORMATION
  Report Type: Spontaneous
  Country: EU (occurrence: EU)
  Receive Date: 20241126
  Receipt Date: 20251107
  Transmission Date: 20260118
  Serious: Yes (Hospitalization, Other)
  Sender: NOVARTIS
  Company Number: EU-002147023-NVSC2024HU225518

PATIENT
  Age: 25 Day
  Sex: Male
  Weight: 3.68 kg

DRUGS (16)
  1. ZOLGENSMA [Suspect]
     Active Substance: ONASEMNOGENE ABEPARVOVEC-XIOI
     Indication: Spinal muscular atrophy
     Dosage: 2X 8.3 ML (1,1 ? 1014 VG/TTKG)
     Route: 042
     Dates: start: 20240717, end: 20240717
  2. ZOLGENSMA [Suspect]
     Active Substance: ONASEMNOGENE ABEPARVOVEC-XIOI
     Dosage: 5.4 ML (1,1 ? 1014 VG/TTKG)
     Route: 042
     Dates: start: 20240717, end: 20240717
  3. ZOLGENSMA [Suspect]
     Active Substance: ONASEMNOGENE ABEPARVOVEC-XIOI
     Dosage: 22 ML
     Route: 042
     Dates: start: 20240717, end: 20240717
  4. Rindex [Concomitant]
     Indication: Fluid replacement
     Dosage: 50 ML (2X30ML/ H FOR 50MINUTES)
     Route: 042
     Dates: start: 20240717, end: 20240717
  5. SODIUM CHLORIDE [Concomitant]
     Active Substance: SODIUM CHLORIDE
     Indication: Fluid replacement
     Dosage: 20 ML (60ML/H FOR 20 MINUTES)
     Route: 042
     Dates: start: 20240717, end: 20240717
  6. SODIUM CHLORIDE [Concomitant]
     Active Substance: SODIUM CHLORIDE
     Indication: Supportive care
  7. PREDNISOLONE [Concomitant]
     Active Substance: PREDNISOLONE
     Indication: Prophylaxis
     Dosage: 4 MG, QD (1 MG/KG OF BODY WEIGHT FOR ONE MONTH
     Route: 054
     Dates: start: 20240716, end: 20240815
  8. PREDNISOLONE [Concomitant]
     Active Substance: PREDNISOLONE
     Dosage: 3.5 MG, QD (1 MG/KG OF BODY WEIGHT FOR ONE MONTH) (GRADUAL DECREASE OF STEROID THERAPY BASED ON THE
     Route: 054
     Dates: start: 20240816, end: 20240821
  9. PREDNISOLONE [Concomitant]
     Active Substance: PREDNISOLONE
     Dosage: 3 MG, QD (1 MG/KG OF BODY WEIGHT FOR ONE MONTH) (GRADUAL DECREASE OF STEROID THERAPY BASED ON THE GO
     Route: 054
     Dates: start: 20240822, end: 20240828
  10. PREDNISOLONE [Concomitant]
     Active Substance: PREDNISOLONE
     Dosage: 2 MG, QD (1 MG/KG OF BODY WEIGHT FOR ONE MONTH) (GRADUAL DECREASE OF STEROID THERAPY BASED ON THE GO
     Route: 054
     Dates: start: 20240829, end: 20240905
  11. PREDNISOLONE [Concomitant]
     Active Substance: PREDNISOLONE
     Dosage: 1 MG, QD (1 MG/KG OF BODY WEIGHT FOR ONE MONTH) (GRADUAL DECREASE OF STEROID THERAPY BASED ON THE GO
     Route: 054
     Dates: start: 20240906, end: 20240913
  12. FAMOTIDINE [Concomitant]
     Active Substance: FAMOTIDINE
     Indication: Gastritis
     Dosage: 2 MG, BID, (SUPPOSITORY)
     Route: 048
     Dates: start: 20240716, end: 20240718
  13. FAMOTIDINE [Concomitant]
     Active Substance: FAMOTIDINE
     Dosage: 2 MG, BID, (SUPPOSITORY)
     Route: 054
     Dates: start: 20240718, end: 20240913
  14. VITAMIN D [Concomitant]
     Active Substance: VITAMIN D NOS
     Indication: Bone development abnormal
     Dosage: 2 DRP, QD (GTT VIGANTOL 2 DROPS DAYLY (1000IU/DAY) )
     Route: 048
     Dates: start: 20240705
  15. DIETARY SUPPLEMENT [Concomitant]
     Active Substance: DIETARY SUPPLEMENT
     Indication: Product used for unknown indication
     Dosage: UNK
     Route: 065
  16. ALBUTEROL SULFATE [Concomitant]
     Active Substance: ALBUTEROL SULFATE
     Indication: Vehicle solution use
     Dosage: 20 ML, QD
     Route: 042
     Dates: start: 20240717, end: 20240717

REACTIONS (9)
  - Blood creatine phosphokinase increased [Recovered/Resolved]
  - Haematochezia [Recovered/Resolved]
  - Troponin I increased [Recovered/Resolved]
  - Blood alkaline phosphatase increased [Recovered/Resolved]
  - Hypercalciuria [Recovering/Resolving]
  - Platelet count increased [Recovered/Resolved]
  - Foramen magnum syndrome [Recovering/Resolving]
  - Urine calcium/creatinine ratio increased [Recovering/Resolving]
  - Milk allergy [Recovered/Resolved]

NARRATIVE: CASE EVENT DATE: 20240718
